FAERS Safety Report 24719342 (Version 1)
Quarter: 2024Q4

REPORT INFORMATION
  Report Type: Spontaneous
  Country: JP (occurrence: JP)
  Receive Date: 20241210
  Receipt Date: 20241210
  Transmission Date: 20250115
  Serious: Yes (Death, Hospitalization)
  Sender: STRIDES
  Company Number: JP-STRIDES ARCOLAB LIMITED-2024SP016360

PATIENT
  Age: 70 Year
  Sex: Male

DRUGS (1)
  1. METHOTREXATE [Suspect]
     Active Substance: METHOTREXATE
     Indication: Rheumatoid arthritis
     Dosage: 6 MILLIGRAM, ONCE A WEEK
     Route: 065

REACTIONS (5)
  - Cardiac failure [Fatal]
  - Atrioventricular block complete [Fatal]
  - Epstein-Barr virus associated lymphoproliferative disorder [Fatal]
  - Lung disorder [Fatal]
  - Neoplasm [Fatal]
